FAERS Safety Report 17929795 (Version 1)
Quarter: 2020Q2

REPORT INFORMATION
  Report Type: Spontaneous
  Country: US (occurrence: US)
  Receive Date: 20200623
  Receipt Date: 20200623
  Transmission Date: 20200714
  Serious: No
  Sender: FDA-Public Use
  Company Number: US-ALLERGAN-2004459US

PATIENT
  Sex: Female

DRUGS (6)
  1. VITAMINS [Concomitant]
     Active Substance: VITAMINS
  2. KYBELLA [Suspect]
     Active Substance: DEOXYCHOLIC ACID
     Dosage: 1 VIAL
     Dates: start: 20120919, end: 20190919
  3. KYBELLA [Suspect]
     Active Substance: DEOXYCHOLIC ACID
     Dosage: 2 VIALS
     Dates: start: 20190725, end: 20190725
  4. KYBELLA [Suspect]
     Active Substance: DEOXYCHOLIC ACID
     Indication: FAT TISSUE INCREASED
     Dosage: 1 VIAL
     Dates: start: 20191217, end: 20191217
  5. JUVEDERM [Concomitant]
     Active Substance: HYALURONIC ACID
  6. BOTOX COSMETIC [Concomitant]
     Active Substance: ONABOTULINUMTOXINA

REACTIONS (3)
  - Swelling face [Unknown]
  - Drug ineffective [Unknown]
  - Weight decreased [Unknown]
